FAERS Safety Report 7148037-6 (Version None)
Quarter: 2010Q4

REPORT INFORMATION
  Report Type: 
  Country: None (occurrence: None)
  Receive Date: 20101209
  Receipt Date: 20101201
  Transmission Date: 20110411
  Serious: Yes (Hospitalization, Other)
  Sender: FDA-Public Use
  Company Number: US-JNJFOC-20101102643

PATIENT
  Sex: Female
  Weight: 70.31 kg

DRUGS (7)
  1. DURAGESIC-100 [Suspect]
     Indication: MUSCULOSKELETAL PAIN
     Route: 062
  2. DURAGESIC-100 [Suspect]
     Route: 062
  3. BIOCLUSIVE DRESSINGS [Suspect]
     Indication: ILL-DEFINED DISORDER
     Route: 065
  4. PROZAC [Concomitant]
     Indication: DEPRESSION
     Route: 048
  5. PROZAC [Concomitant]
     Indication: ANXIETY
     Route: 048
  6. DIOVAN [Concomitant]
     Indication: HYPERTENSION
     Route: 048
  7. ZOFRAN [Concomitant]
     Indication: NAUSEA
     Route: 048

REACTIONS (4)
  - DERMATITIS CONTACT [None]
  - MEDICAL DEVICE COMPLICATION [None]
  - MUSCULOSKELETAL PAIN [None]
  - PRODUCT QUALITY ISSUE [None]
